FAERS Safety Report 12995926 (Version 1)
Quarter: 2016Q4

REPORT INFORMATION
  Report Type: Report from Study
  Country: US (occurrence: US)
  Receive Date: 20161202
  Receipt Date: 20161202
  Transmission Date: 20170207
  Serious: Yes (Hospitalization)
  Sender: FDA-Public Use
  Company Number: US-ACTELION-A-NJ2015-116191

PATIENT
  Age: 4 Year
  Sex: Female

DRUGS (9)
  1. REMODULIN [Concomitant]
     Active Substance: TREPROSTINIL
     Dosage: 96 NG/KG, PER MIN
     Route: 058
     Dates: start: 2014
  2. REVATIO [Concomitant]
     Active Substance: SILDENAFIL CITRATE
     Dosage: 10 MG, TID
     Dates: start: 2014
  3. ASPIRIN. [Concomitant]
     Active Substance: ASPIRIN
  4. NACL [Concomitant]
     Active Substance: SODIUM CHLORIDE
  5. TRACLEER [Suspect]
     Active Substance: BOSENTAN
     Dosage: 8.5 MG, UNK
     Route: 048
     Dates: start: 20150514
  6. ZANTAC [Concomitant]
     Active Substance: RANITIDINE HYDROCHLORIDE
  7. TRACLEER [Suspect]
     Active Substance: BOSENTAN
     Indication: PULMONARY ARTERIAL HYPERTENSION
     Dosage: 62.5 UNK, UNK
     Route: 048
     Dates: start: 20150113
  8. TRACLEER [Suspect]
     Active Substance: BOSENTAN
     Dosage: 24 MG, UNK
     Route: 048
     Dates: start: 20140506
  9. XOPENEX [Concomitant]
     Active Substance: LEVALBUTEROL HYDROCHLORIDE

REACTIONS (6)
  - Viral infection [Unknown]
  - Bronchitis [Recovered/Resolved]
  - Acute respiratory failure [Recovered/Resolved]
  - Respiratory syncytial virus infection [Unknown]
  - Pneumonia [Unknown]
  - Hypoxia [Recovered/Resolved]
